FAERS Safety Report 8447016-6 (Version None)
Quarter: 2012Q2

REPORT INFORMATION
  Report Type: 
  Country: None (occurrence: None)
  Receive Date: 20120619
  Receipt Date: 20120607
  Transmission Date: 20120825
  Serious: Yes (Hospitalization, Other)
  Sender: FDA-Public Use
  Company Number: US-SANOFI-AVENTIS-2012SA041414

PATIENT
  Age: 68 Year
  Sex: Female

DRUGS (7)
  1. LANTUS [Suspect]
     Dosage: DOSE:5 UNIT(S)
     Route: 058
     Dates: start: 20120405
  2. GLIPIZIDE [Concomitant]
  3. DIOVAN [Concomitant]
  4. METFORMIN [Concomitant]
  5. LANTUS [Suspect]
     Dosage: DOSE:12 UNIT(S)
     Route: 058
  6. CARDIAC THERAPY [Concomitant]
  7. SOLOSTAR [Suspect]
     Dates: start: 20120405

REACTIONS (7)
  - ARTHRITIS [None]
  - BLOOD GLUCOSE INCREASED [None]
  - MUSCULAR WEAKNESS [None]
  - PAIN IN EXTREMITY [None]
  - CONDITION AGGRAVATED [None]
  - ARTHRALGIA [None]
  - JOINT SWELLING [None]
